FAERS Safety Report 5411018-4 (Version None)
Quarter: 2007Q3

REPORT INFORMATION
  Report Type: 
  Country: None (occurrence: None)
  Receive Date: 20070810
  Receipt Date: 20070730
  Transmission Date: 20080115
  Serious: Yes (Hospitalization)
  Sender: FDA-Public Use
  Company Number: CA-AVENTIS-200713584EU

PATIENT
  Age: 63 Year
  Sex: Female
  Weight: 62.7 kg

DRUGS (11)
  1. ANZEMET [Suspect]
     Dosage: DOSE: 100 MG 1 H BEFORE TEMOZOLOMIDE ON THE 1ST DAY OF TREATMENT
  2. TEMODAL [Concomitant]
     Indication: GLIOBLASTOMA
     Dosage: DOSE: 250 MG, 4 DAYS/MONTH
  3. STEMETIL                           /00013301/ [Concomitant]
     Dosage: DOSE: 10 MG 1 H BEFORE TEMOZOLOMIDE ON DAYS 2 TO 4 OF TREATMENT
     Route: 048
  4. RAMIPRIL (NOS) [Concomitant]
     Route: 048
  5. TIMOLOL XE [Concomitant]
     Indication: GLAUCOMA
     Route: 031
  6. LATANOPROST 0.005 % [Concomitant]
     Indication: GLAUCOMA
     Route: 031
  7. LEVOTHYROXINE SODIUM [Concomitant]
     Indication: HYPOTHYROIDISM
  8. CALCIUM + VITAMIN D4 [Concomitant]
     Indication: HYSTERECTOMY
     Dosage: DOSE: 500 MG + 400 U
  9. ALENDRONATE SODIUM [Concomitant]
     Indication: HYSTERECTOMY
  10. PHENYTOIN [Concomitant]
     Dosage: DOSE: 100 MG (MORNING) + 50 MG (BEDTIME)
  11. CLOBAZAM [Concomitant]

REACTIONS (4)
  - ABDOMINAL DISTENSION [None]
  - ABDOMINAL PAIN [None]
  - COLITIS ISCHAEMIC [None]
  - CONSTIPATION [None]
